FAERS Safety Report 26124459 (Version 1)
Quarter: 2025Q4

REPORT INFORMATION
  Report Type: Other
  Country: GB (occurrence: GB)
  Receive Date: 20251205
  Receipt Date: 20251205
  Transmission Date: 20260118
  Serious: Yes (Other)
  Sender: ZYDUS PHARM
  Company Number: None

PATIENT

DRUGS (2)
  1. MESALAMINE [Suspect]
     Active Substance: MESALAMINE
     Indication: Inflammatory bowel disease
     Dosage: 2 GRAM, QD
     Route: 065
     Dates: start: 20251120, end: 20251121
  2. PENTASA [Concomitant]
     Active Substance: MESALAMINE
     Indication: Inflammatory bowel disease
     Dosage: UNK
     Route: 065
     Dates: start: 20251016

REACTIONS (1)
  - Ulcer [Recovering/Resolving]

NARRATIVE: CASE EVENT DATE: 20251121
